FAERS Safety Report 6958649-8 (Version None)
Quarter: 2010Q3

REPORT INFORMATION
  Report Type: 
  Country: None (occurrence: None)
  Receive Date: 20100830
  Receipt Date: 20100830
  Transmission Date: 20110219
  Serious: Yes (Disabling)
  Sender: FDA-Public Use
  Company Number: None

PATIENT
  Age: 65 Year
  Sex: Female
  Weight: 105.2345 kg

DRUGS (1)
  1. DILAUDID [Suspect]
     Indication: CHEST PAIN
     Dosage: 2MG Q6H IV BOLUS
     Route: 040
     Dates: start: 20100215, end: 20100216

REACTIONS (3)
  - DEPRESSED LEVEL OF CONSCIOUSNESS [None]
  - LETHARGY [None]
  - SEDATION [None]
